FAERS Safety Report 8031475-7 (Version None)
Quarter: 2011Q4

REPORT INFORMATION
  Report Type: 
  Country: None (occurrence: None)
  Receive Date: 20111201
  Receipt Date: 20110812
  Transmission Date: 20120403
  Serious: Yes (Other)
  Sender: FDA-Public Use
  Company Number: 296305USA

PATIENT
  Age: 64 Year
  Sex: Female

DRUGS (3)
  1. AMOXICILLIN AND CLAVULANATE POTASSIUM [Suspect]
     Indication: TOOTH ABSCESS
     Dosage: 500/125, ORAL
     Route: 048
     Dates: start: 20110805
  2. IBUPROFEN [Concomitant]
  3. ACETAMINOPHEN [Concomitant]

REACTIONS (8)
  - DYSPHAGIA [None]
  - PALMAR ERYTHEMA [None]
  - CHEST DISCOMFORT [None]
  - VULVOVAGINAL PRURITUS [None]
  - FEELING HOT [None]
  - OROPHARYNGEAL PAIN [None]
  - ERYTHEMA [None]
  - DYSPNOEA [None]
